FAERS Safety Report 24060334 (Version 1)
Quarter: 2024Q3

REPORT INFORMATION
  Report Type: Spontaneous
  Country: GB (occurrence: GB)
  Receive Date: 20240708
  Receipt Date: 20240708
  Transmission Date: 20241017
  Serious: Yes (Other)
  Sender: PFIZER
  Company Number: None

PATIENT
  Age: 27 Year
  Sex: Female
  Weight: 63 kg

DRUGS (1)
  1. DEPO-PROVERA [Suspect]
     Active Substance: MEDROXYPROGESTERONE ACETATE
     Indication: Contraception
     Dosage: UNK

REACTIONS (4)
  - Nipple pain [Not Recovered/Not Resolved]
  - Breast pain [Not Recovered/Not Resolved]
  - Vaginal haemorrhage [Not Recovered/Not Resolved]
  - Axillary pain [Not Recovered/Not Resolved]

NARRATIVE: CASE EVENT DATE: 20240312
